FAERS Safety Report 11639035 (Version 1)
Quarter: 2015Q4

REPORT INFORMATION
  Report Type: Other
  Country: GB (occurrence: GB)
  Receive Date: 20151018
  Receipt Date: 20151018
  Transmission Date: 20160304
  Serious: Yes (Other)
  Sender: FDA-Public Use
  Company Number: GB-SUN PHARMACEUTICAL INDUSTRIES LTD-2015SUN02092

PATIENT
  Age: 50 Year
  Sex: Female
  Weight: 75 kg

DRUGS (4)
  1. AMOXICILLIN. [Concomitant]
     Active Substance: AMOXICILLIN
     Dosage: 1 DF, TID
     Dates: start: 20150925
  2. FLUTICASONE [Concomitant]
     Active Substance: FLUTICASONE\FLUTICASONE PROPIONATE
     Dosage: 1 DF, BID
     Route: 055
     Dates: start: 20150102
  3. SALBUTAMOL [Concomitant]
     Active Substance: ALBUTEROL
     Dosage: 2 DF, UNK
     Route: 055
     Dates: start: 20150102
  4. VENLAFAXINE [Suspect]
     Active Substance: VENLAFAXINE HYDROCHLORIDE
     Indication: PRODUCT USED FOR UNKNOWN INDICATION
     Dosage: UNK
     Route: 065
     Dates: start: 20150921

REACTIONS (6)
  - Vomiting [Recovered/Resolved]
  - Dizziness [Recovering/Resolving]
  - Malaise [Recovered/Resolved]
  - Nausea [Recovered/Resolved]
  - Malaise [None]
  - Dissociation [Recovered/Resolved]

NARRATIVE: CASE EVENT DATE: 20150925
